FAERS Safety Report 5977694-2 (Version None)
Quarter: 2008Q4

REPORT INFORMATION
  Report Type: 
  Country: None (occurrence: None)
  Receive Date: 20081203
  Receipt Date: 20081127
  Transmission Date: 20090506
  Serious: Yes (Hospitalization)
  Sender: FDA-Public Use
  Company Number: GB-ROCHE-599992

PATIENT
  Sex: Female
  Weight: 76 kg

DRUGS (2)
  1. ORLISTAT [Suspect]
     Indication: OBESITY
     Route: 048
  2. ORLISTAT [Suspect]
     Route: 048
     Dates: start: 20050101

REACTIONS (2)
  - HYPOXIA [None]
  - INTESTINAL OPERATION [None]
